FAERS Safety Report 21221707 (Version 2)
Quarter: 2022Q3

REPORT INFORMATION
  Report Type: Spontaneous
  Country: ES (occurrence: ES)
  Receive Date: 20220817
  Receipt Date: 20220826
  Transmission Date: 20221027
  Serious: Yes (Other)
  Sender: FDA-Public Use
  Company Number: ES-Almus S.r.l.-ES-NIC-22-00174

PATIENT
  Age: 76 Year
  Sex: Female

DRUGS (7)
  1. METFORMIN HYDROCHLORIDE [Suspect]
     Active Substance: METFORMIN HYDROCHLORIDE
     Indication: Type 2 diabetes mellitus
     Dosage: 850 MILLIGRAM, ONCE A DAY
     Route: 065
  2. CYANOCOBALAMIN [Concomitant]
     Active Substance: CYANOCOBALAMIN
     Indication: Anaemia vitamin B12 deficiency
     Dosage: 1 MILLIGRAM PER MONTH
     Route: 065
  3. INDAPAMIDE [Concomitant]
     Active Substance: INDAPAMIDE
     Indication: Hypertension
     Dosage: 2.5 MILLIGRAM, ONCE A DAY
     Route: 065
  4. METAMIZOLE [Concomitant]
     Active Substance: METAMIZOLE
     Indication: Intervertebral disc protrusion
     Dosage: 575 MILLIGRAM, ONCE A DAY
     Route: 065
  5. ACETAMINOPHEN [Concomitant]
     Active Substance: ACETAMINOPHEN
     Indication: Intervertebral disc protrusion
     Dosage: 1 GRAM, ONCE A DAY
     Route: 065
  6. PENTOXIFYLLINE [Concomitant]
     Active Substance: PENTOXIFYLLINE
     Indication: Peripheral venous disease
     Dosage: 400 MILLIGRAM, ONCE A DAY
     Route: 065
  7. RAMIPRIL [Concomitant]
     Active Substance: RAMIPRIL
     Indication: Hypertension
     Dosage: 5 MILLIGRAM, ONCE A DAY
     Route: 065

REACTIONS (8)
  - Lower respiratory tract infection [Unknown]
  - Atrial fibrillation [Recovered/Resolved]
  - Blood sodium decreased [Recovered/Resolved]
  - Overdose [Unknown]
  - Blood chloride decreased [Recovered/Resolved]
  - Dyspepsia [Unknown]
  - Flatulence [Unknown]
  - Abdominal pain [Unknown]
